FAERS Safety Report 8684336 (Version 2)
Quarter: 2013Q4

REPORT INFORMATION
  Report Type: Spontaneous
  Country: CA (occurrence: CA)
  Receive Date: 20120726
  Receipt Date: 20131017
  Transmission Date: 20140711
  Serious: Yes (Other)
  Sender: FDA-Public Use
  Company Number: CA-WATSON-2012-12357

PATIENT
  Sex: 0

DRUGS (1)
  1. NEXT CHOICE [Suspect]
     Indication: ORAL CONTRACEPTION
     Dosage: 2 TABLETS, STAT
     Route: 048
     Dates: start: 20120627, end: 20120627

REACTIONS (4)
  - Hallucination, visual [Recovered/Resolved]
  - Fatigue [Recovered/Resolved]
  - Headache [Recovered/Resolved]
  - Dizziness [Recovered/Resolved]
